FAERS Safety Report 9463699 (Version 4)
Quarter: 2014Q1

REPORT INFORMATION
  Report Type: Report from Study
  Country: AT (occurrence: AT)
  Receive Date: 20130819
  Receipt Date: 20140115
  Transmission Date: 20141002
  Serious: Yes (Hospitalization, Other)
  Sender: FDA-Public Use
  Company Number: PHHY2013AT080799

PATIENT
  Sex: Female
  Weight: 70 kg

DRUGS (2)
  1. EVEROLIMUS [Suspect]
     Indication: BREAST CANCER
     Dosage: 5 MG, DAILY
     Route: 048
     Dates: start: 20130613
  2. EXEMESTANE [Concomitant]
     Indication: BREAST CANCER
     Dosage: 25 MG, DAILY
     Route: 048
     Dates: start: 20130613

REACTIONS (8)
  - Blood uric acid increased [Not Recovered/Not Resolved]
  - Angioedema [Recovered/Resolved]
  - Lip swelling [Recovering/Resolving]
  - General physical health deterioration [Not Recovered/Not Resolved]
  - Pleural effusion [Recovering/Resolving]
  - Swelling face [Not Recovered/Not Resolved]
  - Chest pain [Not Recovered/Not Resolved]
  - Fatigue [Not Recovered/Not Resolved]
